FAERS Safety Report 6271578-0 (Version None)
Quarter: 2009Q3

REPORT INFORMATION
  Report Type: 
  Country: None (occurrence: None)
  Receive Date: 20090716
  Receipt Date: 20090716
  Transmission Date: 20100115
  Serious: Yes (Other)
  Sender: FDA-Public Use
  Company Number: None

PATIENT
  Age: 42 Year
  Sex: Female
  Weight: 86.637 kg

DRUGS (2)
  1. GABAPENTIN [Suspect]
     Indication: BREAST PAIN
     Dosage: 90 ONE TABLET THREE TIMES PO
     Route: 048
     Dates: start: 20090326, end: 20090329
  2. GABAPENTIN [Suspect]
     Indication: NEUROPATHY PERIPHERAL
     Dosage: 90 ONE TABLET THREE TIMES PO
     Route: 048
     Dates: start: 20090326, end: 20090329

REACTIONS (4)
  - ABDOMINAL PAIN [None]
  - LETHARGY [None]
  - NAUSEA [None]
  - VOMITING [None]
